FAERS Safety Report 25171240 (Version 5)
Quarter: 2025Q2

REPORT INFORMATION
  Report Type: Report from Study
  Country: CA (occurrence: CA)
  Receive Date: 20250408
  Receipt Date: 20250507
  Transmission Date: 20250717
  Serious: Yes (Other)
  Sender: CSL BEHRING
  Company Number: CA-BEH-2024185793

PATIENT
  Age: 72 Year
  Sex: Female
  Weight: 113.6 kg

DRUGS (14)
  1. HIZENTRA [Suspect]
     Active Substance: HUMAN IMMUNOGLOBULIN G
     Indication: Primary immunodeficiency syndrome
     Dosage: 20 G, QW
     Route: 065
     Dates: start: 20230619
  2. HIZENTRA [Suspect]
     Active Substance: HUMAN IMMUNOGLOBULIN G
     Dosage: WEEKLY
     Route: 065
     Dates: start: 20230619
  3. HIZENTRA [Suspect]
     Active Substance: HUMAN IMMUNOGLOBULIN G
     Dosage: 20 G, QW
     Route: 065
     Dates: start: 20230619
  4. HIZENTRA [Suspect]
     Active Substance: HUMAN IMMUNOGLOBULIN G
     Dosage: UNK
     Route: 065
     Dates: start: 20250309
  5. HIZENTRA [Suspect]
     Active Substance: HUMAN IMMUNOGLOBULIN G
     Dosage: 20 G, QW
     Route: 065
     Dates: start: 20230619
  6. HIZENTRA [Suspect]
     Active Substance: HUMAN IMMUNOGLOBULIN G
     Dosage: 20 G, QW
     Route: 058
  7. HIZENTRA [Suspect]
     Active Substance: HUMAN IMMUNOGLOBULIN G
     Dosage: 20 G, QW
     Route: 058
     Dates: start: 20230619
  8. HIZENTRA [Suspect]
     Active Substance: HUMAN IMMUNOGLOBULIN G
     Route: 065
     Dates: start: 202504
  9. ALLOPURINOL [Concomitant]
     Active Substance: ALLOPURINOL
  10. AMLODIPINE [Concomitant]
     Active Substance: AMLODIPINE BESYLATE
  11. LASIX [Concomitant]
     Active Substance: FUROSEMIDE
  12. PANTOPRAZOLE SODIUM [Concomitant]
     Active Substance: PANTOPRAZOLE SODIUM
  13. BUPROPION [Concomitant]
     Active Substance: BUPROPION
  14. TELMISARTAN [Concomitant]
     Active Substance: TELMISARTAN
     Route: 065
     Dates: start: 20230619

REACTIONS (37)
  - Pneumonia [Unknown]
  - Chest injury [Unknown]
  - Blister [Unknown]
  - Blister rupture [Recovering/Resolving]
  - Erythema [Unknown]
  - Constipation [Recovered/Resolved]
  - Asthenia [Unknown]
  - Fatigue [Unknown]
  - Blood pressure diastolic decreased [Unknown]
  - Sinusitis [Recovering/Resolving]
  - Infusion site discharge [Unknown]
  - Dry skin [Unknown]
  - Pruritus [Unknown]
  - Nasal congestion [Recovering/Resolving]
  - Fear of injection [Unknown]
  - Product dose omission in error [Unknown]
  - Asthenia [Unknown]
  - Lethargy [Unknown]
  - Infusion site discharge [Unknown]
  - Sleep disorder [Unknown]
  - Incorrect dose administered [Unknown]
  - Nervousness [Unknown]
  - Diarrhoea [Unknown]
  - Frequent bowel movements [Unknown]
  - Gastrointestinal disorder [Unknown]
  - Asthenia [Unknown]
  - Lethargy [Unknown]
  - Constipation [Unknown]
  - Vertigo [Unknown]
  - Insomnia [Unknown]
  - Myalgia [Unknown]
  - Pain [Unknown]
  - Myalgia [Unknown]
  - Fall [Unknown]
  - Arthralgia [Unknown]
  - Vertigo [Unknown]
  - Arthralgia [Unknown]

NARRATIVE: CASE EVENT DATE: 20241101
